FAERS Safety Report 16856070 (Version 5)
Quarter: 2020Q4

REPORT INFORMATION
  Report Type: Spontaneous
  Country: DE (occurrence: DE)
  Receive Date: 20190926
  Receipt Date: 20201215
  Transmission Date: 20210113
  Serious: Yes (Hospitalization, Other)
  Sender: FDA-Public Use
  Company Number: DE-MYLANLABS-2019M1089026

PATIENT
  Age: 69 Year
  Sex: Female
  Weight: 72 kg

DRUGS (9)
  1. L THYROXIN HENNING [Concomitant]
     Active Substance: LEVOTHYROXINE SODIUM
     Indication: PRODUCT USED FOR UNKNOWN INDICATION
     Dosage: UNK, QD, (? X 0.025 MG)
     Route: 065
  2. L-THYROX HEXAL [Concomitant]
     Active Substance: LEVOTHYROXINE SODIUM
     Indication: PRODUCT USED FOR UNKNOWN INDICATION
     Dosage: UNK
     Route: 065
  3. L THYROXIN HENNING [Concomitant]
     Active Substance: LEVOTHYROXINE SODIUM
     Dosage: UNK, QD (1X 0.05 MG)
     Route: 065
  4. L-THYROX HEXAL [Concomitant]
     Active Substance: LEVOTHYROXINE SODIUM
     Dosage: 88 MICROGRAM, QD
     Route: 065
  5. LEVOTHYROXINE. [Concomitant]
     Active Substance: LEVOTHYROXINE
     Dosage: 75 MICROGRAM, QD
     Route: 065
     Dates: start: 201611, end: 201805
  6. VALSARTAN/HYDROCHLOROTHIAZIDE [Concomitant]
     Active Substance: HYDROCHLOROTHIAZIDE\VALSARTAN
     Indication: PRODUCT USED FOR UNKNOWN INDICATION
     Dosage: UNK, QD
     Route: 065
  7. LEVOTHYROXINE. [Concomitant]
     Active Substance: LEVOTHYROXINE
     Indication: PRODUCT USED FOR UNKNOWN INDICATION
     Dosage: 100 MICROGRAM, QD
     Route: 065
     Dates: start: 201611
  8. VALSACOR [Concomitant]
     Active Substance: VALSARTAN
     Indication: PRODUCT USED FOR UNKNOWN INDICATION
     Dosage: 1 DOSAGE FORM, QD
     Route: 065
     Dates: start: 20170322, end: 202010
  9. HYDROCHLOROTHIAZIDE/VALSARTAN [Suspect]
     Active Substance: HYDROCHLOROTHIAZIDE\VALSARTAN
     Indication: HYPERTENSION
     Dosage: 1 DOSAGE FORM, QD (1 DF, QD (1X160MG/25MG QD (IN THE MORNINGS)))
     Route: 065
     Dates: start: 20120515, end: 20170322

REACTIONS (55)
  - Muscle spasms [Unknown]
  - Weight increased [Unknown]
  - Intervertebral disc disorder [Unknown]
  - Abdominal pain [Recovered/Resolved]
  - Diverticulum [Recovered/Resolved]
  - Joint swelling [Unknown]
  - Chest pain [Unknown]
  - Musculoskeletal chest pain [Unknown]
  - Mental disorder [Unknown]
  - Flank pain [Unknown]
  - Arthralgia [Unknown]
  - Diarrhoea [Unknown]
  - Constipation [Recovered/Resolved]
  - Vomiting [Unknown]
  - Helicobacter test positive [Unknown]
  - Dysphonia [Unknown]
  - Chondropathy [Unknown]
  - Rheumatic disorder [Unknown]
  - Sciatica [Unknown]
  - Nasopharyngitis [Unknown]
  - Hypotension [Unknown]
  - Cystitis [Unknown]
  - Varicose vein [Unknown]
  - Fatigue [Unknown]
  - Loss of personal independence in daily activities [Unknown]
  - Bursitis [Unknown]
  - Patellofemoral pain syndrome [Unknown]
  - Weight fluctuation [Unknown]
  - Palpitations [Unknown]
  - Dizziness [Unknown]
  - Migraine [Unknown]
  - Peripheral venous disease [Unknown]
  - Conjunctival oedema [Unknown]
  - Faeces hard [Recovered/Resolved]
  - Bladder disorder [Recovered/Resolved]
  - Gastrooesophageal reflux disease [Unknown]
  - Cough [Recovering/Resolving]
  - Contusion [Unknown]
  - Peripheral swelling [Unknown]
  - Diverticulitis [Unknown]
  - Arthropathy [Unknown]
  - Pain in extremity [Unknown]
  - Eye disorder [Unknown]
  - Body temperature increased [Recovering/Resolving]
  - Cardiac failure [Unknown]
  - Dysphagia [Unknown]
  - Intervertebral disc protrusion [Unknown]
  - Back pain [Unknown]
  - Osteoarthritis [Unknown]
  - Dyspnoea [Unknown]
  - Hyperhidrosis [Unknown]
  - Hypothyroidism [Unknown]
  - Epicondylitis [Unknown]
  - Abdominal discomfort [Unknown]
  - Glucose tolerance impaired [Unknown]

NARRATIVE: CASE EVENT DATE: 2016
